FAERS Safety Report 25065932 (Version 1)
Quarter: 2025Q1

REPORT INFORMATION
  Report Type: Report from Study
  Country: US (occurrence: US)
  Receive Date: 20250312
  Receipt Date: 20250312
  Transmission Date: 20250408
  Serious: Yes (Other)
  Sender: JOHNSON AND JOHNSON
  Company Number: US-JNJFOC-20250259170

PATIENT
  Age: 68 Year
  Sex: Female

DRUGS (11)
  1. SPRAVATO [Suspect]
     Active Substance: ESKETAMINE
     Indication: Depression
     Route: 045
     Dates: start: 20250211, end: 20250211
  2. SPRAVATO [Suspect]
     Active Substance: ESKETAMINE
     Indication: Major depression
     Dosage: ^^84 MG, 1 TOTAL DOSE^^
     Route: 045
     Dates: start: 20250214, end: 20250214
  3. FLUOXETINE [Concomitant]
     Active Substance: FLUOXETINE HYDROCHLORIDE
     Indication: Major depression
     Dates: start: 1990
  4. FLUOXETINE [Concomitant]
     Active Substance: FLUOXETINE HYDROCHLORIDE
     Indication: Generalised anxiety disorder
  5. QUETIAPINE [Concomitant]
     Active Substance: QUETIAPINE
     Indication: Insomnia
     Dosage: EVERY NIGHT AT BEDTIME
  6. QUETIAPINE [Concomitant]
     Active Substance: QUETIAPINE
     Indication: Generalised anxiety disorder
  7. QUETIAPINE [Concomitant]
     Active Substance: QUETIAPINE
     Indication: Major depression
  8. HYDROXYZINE [Concomitant]
     Active Substance: HYDROXYZINE HYDROCHLORIDE
     Indication: Generalised anxiety disorder
  9. HYDROXYZINE [Concomitant]
     Active Substance: HYDROXYZINE HYDROCHLORIDE
     Indication: Insomnia
  10. PHENTERMINE [Concomitant]
     Active Substance: PHENTERMINE
     Indication: Weight decreased
  11. TOPIRAMATE [Concomitant]
     Active Substance: TOPIRAMATE
     Indication: Weight decreased

REACTIONS (8)
  - Pruritus [Recovered/Resolved]
  - Headache [Recovered/Resolved]
  - Flank pain [Recovered/Resolved]
  - Irritability [Recovered/Resolved]
  - Insomnia [Unknown]
  - Anxiety [Unknown]
  - Gait disturbance [Unknown]
  - Mood altered [Unknown]

NARRATIVE: CASE EVENT DATE: 20250201
